FAERS Safety Report 24561601 (Version 1)
Quarter: 2024Q4

REPORT INFORMATION
  Report Type: Spontaneous
  Country: CN (occurrence: CN)
  Receive Date: 20241029
  Receipt Date: 20241029
  Transmission Date: 20250114
  Serious: Yes (Hospitalization, Other)
  Sender: JAZZ
  Company Number: CN-PHARMAMAR-2024PM000871

PATIENT
  Age: 70 Year
  Sex: Male
  Weight: 72 kg

DRUGS (5)
  1. ZEPZELCA [Suspect]
     Active Substance: LURBINECTEDIN
     Indication: Small cell lung cancer
     Dosage: 6 MILLIGRAM
     Route: 042
     Dates: start: 20240903, end: 20240903
  2. RIVAROXABAN [Concomitant]
     Active Substance: RIVAROXABAN
     Indication: Anticoagulant therapy
     Dosage: 15 MILLIGRAM, QD
     Route: 048
  3. CALPLEX [IRON POLYSACCHARIDE COMPLEX] [Concomitant]
     Indication: Sideroblastic anaemia
     Dosage: 0.3 GRAM, QD
     Route: 048
  4. AMIODARONE HYDROCHLORIDE [Concomitant]
     Active Substance: AMIODARONE HYDROCHLORIDE
     Indication: Atrial fibrillation
     Dosage: 0.2 UNK
     Route: 048
     Dates: start: 20240902, end: 20240905
  5. DEXTROSE [Concomitant]
     Active Substance: DEXTROSE MONOHYDRATE
     Indication: Lung neoplasm malignant
     Dosage: 250 MILLILITER, Q3W
     Route: 042
     Dates: start: 20240903, end: 20240903

REACTIONS (2)
  - Drug-induced liver injury [Recovering/Resolving]
  - Nausea [Recovering/Resolving]

NARRATIVE: CASE EVENT DATE: 20240904
